FAERS Safety Report 10234561 (Version 1)
Quarter: 2014Q2

REPORT INFORMATION
  Report Type: Spontaneous
  Country: NZ (occurrence: NZ)
  Receive Date: 20140613
  Receipt Date: 20140613
  Transmission Date: 20141212
  Serious: Yes (Death, Hospitalization, Other)
  Sender: FDA-Public Use
  Company Number: NZ-009507513-1406NZL005811

PATIENT
  Sex: 0

DRUGS (4)
  1. SIMVASTATIN [Suspect]
     Indication: CARDIOVASCULAR EVENT PROPHYLAXIS
     Dosage: 20MG DAILY
     Route: 048
  2. AZOL [Concomitant]
     Indication: ANTIFUNGAL TREATMENT
  3. CYCLOSPORINE [Concomitant]
  4. WARFARIN [Concomitant]

REACTIONS (1)
  - Rhabdomyolysis [Fatal]
